FAERS Safety Report 14925661 (Version 2)
Quarter: 2018Q2

REPORT INFORMATION
  Report Type: Spontaneous
  Country: ZA (occurrence: ZA)
  Receive Date: 20180522
  Receipt Date: 20180529
  Transmission Date: 20180711
  Serious: Yes (Life-Threatening)
  Sender: FDA-Public Use
  Company Number: ZA-009507513-1805ZAF008092

PATIENT
  Age: 7 Year
  Sex: Female

DRUGS (1)
  1. MONTE-AIR 4 MG [Suspect]
     Active Substance: MONTELUKAST SODIUM
     Indication: ASTHMA
     Dosage: UNK
     Route: 048
     Dates: start: 201804

REACTIONS (3)
  - Drug dispensing error [Unknown]
  - Expired product administered [Unknown]
  - Upper respiratory tract infection [Recovering/Resolving]

NARRATIVE: CASE EVENT DATE: 2018
